FAERS Safety Report 9539096 (Version 2)
Quarter: 2013Q3

REPORT INFORMATION
  Report Type: Spontaneous
  Country: FR (occurrence: FR)
  Receive Date: 20130920
  Receipt Date: 20130920
  Transmission Date: 20140515
  Serious: Yes (Other)
  Sender: FDA-Public Use
  Company Number: FR-009507513-2011SP054460

PATIENT
  Age: 45 Year
  Sex: Female
  Weight: 60 kg

DRUGS (1)
  1. NEXPLANON [Suspect]
     Indication: PRODUCT USED FOR UNKNOWN INDICATION
     Dosage: UNK DF, UNK
     Dates: start: 20110804

REACTIONS (5)
  - Haematoma infection [Recovered/Resolved]
  - Oedema [Recovered/Resolved]
  - Application site abscess [Recovered/Resolved]
  - Implant site discharge [Recovered/Resolved]
  - Implant site pruritus [Recovered/Resolved]
